FAERS Safety Report 18672858 (Version 1)
Quarter: 2020Q4

REPORT INFORMATION
  Report Type: Spontaneous
  Country: US (occurrence: US)
  Receive Date: 20201228
  Receipt Date: 20201228
  Transmission Date: 20210114
  Serious: Yes (Other)
  Sender: FDA-Public Use
  Company Number: US-BAYER-2020-285554

PATIENT
  Age: 59 Year
  Sex: Female

DRUGS (1)
  1. BETASERON [Suspect]
     Active Substance: INTERFERON BETA-1B
     Indication: MULTIPLE SCLEROSIS
     Dosage: 0.3 MG, QOD
     Route: 058

REACTIONS (5)
  - Multiple sclerosis relapse [None]
  - Blood pressure increased [None]
  - Blepharospasm [None]
  - Night sweats [None]
  - Gait disturbance [None]

NARRATIVE: CASE EVENT DATE: 202003
